FAERS Safety Report 7021877-X (Version None)
Quarter: 2010Q3

REPORT INFORMATION
  Report Type: 
  Country: None (occurrence: None)
  Receive Date: 20100928
  Receipt Date: 20100916
  Transmission Date: 20110219
  Serious: Yes (Death)
  Sender: FDA-Public Use
  Company Number: 2010EU004992

PATIENT
  Age: 59 Year
  Sex: Female

DRUGS (2)
  1. TACROLIMUS [Suspect]
     Indication: HEART TRANSPLANT
     Dates: start: 19980101
  2. ANTI-THYMOCYTE GLOBULIN NOS [Suspect]
     Indication: HEART TRANSPLANT

REACTIONS (1)
  - CEREBRAL HAEMORRHAGE [None]
